FAERS Safety Report 24166550 (Version 2)
Quarter: 2024Q3

REPORT INFORMATION
  Report Type: Spontaneous
  Country: GB (occurrence: GB)
  Receive Date: 20240802
  Receipt Date: 20240814
  Transmission Date: 20241016
  Serious: Yes (Hospitalization, Other)
  Sender: RANBAXY
  Company Number: GB-SUN PHARMACEUTICAL INDUSTRIES LTD-2024R1-460089

PATIENT
  Age: 5 Decade
  Sex: Male

DRUGS (2)
  1. MORPHINE [Suspect]
     Active Substance: MORPHINE
     Indication: Pain
     Dosage: UNK
     Route: 048
  2. QUETIAPINE [Suspect]
     Active Substance: QUETIAPINE
     Indication: Product used for unknown indication
     Dosage: 50 MILLIGRAM, ON
     Route: 065

REACTIONS (8)
  - Coma scale abnormal [Unknown]
  - Overdose [Unknown]
  - Respiratory depression [Unknown]
  - Acute kidney injury [Unknown]
  - Liver injury [Unknown]
  - Brain injury [Unknown]
  - Toxic leukoencephalopathy [Unknown]
  - Drug ineffective [Unknown]
